FAERS Safety Report 5821344-2 (Version None)
Quarter: 2008Q3

REPORT INFORMATION
  Report Type: 
  Country: None (occurrence: None)
  Receive Date: 20080724
  Receipt Date: 20080714
  Transmission Date: 20090109
  Serious: Yes (Death, Life-Threatening, Hospitalization)
  Sender: FDA-Public Use
  Company Number: SE-MERCK-0807SWE00016

PATIENT
  Age: 40 Year
  Sex: Male

DRUGS (10)
  1. EMEND [Suspect]
     Route: 048
  2. TRABECTEDIN [Suspect]
     Indication: LIPOSARCOMA
     Route: 065
  3. DOXORUBICIN [Concomitant]
     Route: 065
  4. IFOSFAMIDE [Concomitant]
     Route: 065
  5. OXYCODONE HYDROCHLORIDE [Concomitant]
     Route: 065
  6. ONDANSETRON [Concomitant]
     Route: 065
  7. ACETAMINOPHEN [Concomitant]
     Route: 065
  8. ALUMINUM HYDROXIDE AND MAGNESIUM TRISILICATE [Concomitant]
     Route: 065
  9. LORAZEPAM [Concomitant]
     Route: 065
  10. LENOGRASTIM [Suspect]
     Route: 065

REACTIONS (4)
  - ACUTE RESPIRATORY DISTRESS SYNDROME [None]
  - LEUKOPENIA [None]
  - MULTI-ORGAN FAILURE [None]
  - SEPSIS [None]
